FAERS Safety Report 15200206 (Version 1)
Quarter: 2018Q3

REPORT INFORMATION
  Report Type: Spontaneous
  Country: FR (occurrence: FR)
  Receive Date: 20180726
  Receipt Date: 20180726
  Transmission Date: 20181010
  Serious: Yes (Life-Threatening, Hospitalization)
  Sender: FDA-Public Use
  Company Number: FR-ABBVIE-18K-056-2430081-00

PATIENT
  Age: 69 Year
  Sex: Female

DRUGS (1)
  1. VENCLYXTO [Suspect]
     Active Substance: VENETOCLAX
     Indication: CHRONIC LYMPHOCYTIC LEUKAEMIA
     Dosage: BETWEEN 400 MG AND 800 MG DAILY
     Route: 048

REACTIONS (3)
  - Off label use [Not Recovered/Not Resolved]
  - Laboratory test abnormal [Unknown]
  - Metastatic neoplasm [Unknown]
